FAERS Safety Report 11115156 (Version 2)
Quarter: 2015Q2

REPORT INFORMATION
  Report Type: Spontaneous
  Country: GB (occurrence: GB)
  Receive Date: 20150515
  Receipt Date: 20150520
  Transmission Date: 20150821
  Serious: Yes (Other)
  Sender: FDA-Public Use
  Company Number: GB-GLAXOSMITHKLINE-GB2015GSK061477

PATIENT
  Sex: Female

DRUGS (1)
  1. IMIGRAN [Suspect]
     Active Substance: SUMATRIPTAN SUCCINATE
     Indication: MIGRAINE
     Dosage: 1 DF, UNK
     Dates: start: 20150424

REACTIONS (4)
  - Pain in extremity [Recovering/Resolving]
  - Product quality issue [Unknown]
  - Erythema [Recovering/Resolving]
  - Haemorrhage [Recovering/Resolving]
